FAERS Safety Report 7855643 (Version 2)
Quarter: 2013Q1

REPORT INFORMATION
  Report Type: Spontaneous
  Country: US (occurrence: US)
  Receive Date: 20110315
  Receipt Date: 20130111
  Transmission Date: 20140127
  Serious: Yes (Life-Threatening, Hospitalization, Other)
  Sender: FDA-Public Use
  Company Number: US-ELI_LILLY_AND_COMPANY-US201103003350

PATIENT
  Sex: Male

DRUGS (7)
  1. BYETTA [Suspect]
     Dosage: 10 UG, BID
     Dates: start: 200512, end: 200812
  2. METFORMIN [Concomitant]
     Dosage: 1000 MG, QD
  3. AUGMENTIN                          /00756801/ [Concomitant]
     Dosage: 875 MG, BID
  4. ASPIRIN [Concomitant]
     Dosage: 81 MG, BID
  5. ENALAPRIL [Concomitant]
     Dosage: 20 MG, QD
  6. MULTIVITAMIN [Concomitant]
  7. ADALAT [Concomitant]
     Dosage: 30 MG, QD

REACTIONS (3)
  - Respiratory failure [Unknown]
  - Pancreatitis necrotising [Unknown]
  - Pancreatitis [Unknown]
